FAERS Safety Report 6322825-8 (Version None)
Quarter: 2009Q3

REPORT INFORMATION
  Report Type: 
  Country: None (occurrence: None)
  Receive Date: 20090824
  Receipt Date: 20090817
  Transmission Date: 20100115
  Serious: Yes (Hospitalization, Other)
  Sender: FDA-Public Use
  Company Number: PHHY2009BR34808

PATIENT
  Age: 14 Year
  Sex: Female
  Weight: 14 kg

DRUGS (4)
  1. TRILEPTAL [Suspect]
     Dosage: UNK
     Route: 048
     Dates: start: 20090201
  2. TRILEPTAL [Suspect]
     Dosage: 8 TABLETS
     Route: 048
     Dates: start: 20090817
  3. OLCADIL [Suspect]
     Dosage: 4 TABLETS ONCE
     Route: 048
     Dates: start: 20090817
  4. SIBUTRAMINE [Suspect]
     Dosage: 4 TABLETS
     Route: 048

REACTIONS (4)
  - AGITATION [None]
  - GASTRIC LAVAGE [None]
  - INTENTIONAL OVERDOSE [None]
  - SUICIDE ATTEMPT [None]
